FAERS Safety Report 6481746-0 (Version None)
Quarter: 2009Q4

REPORT INFORMATION
  Report Type: 
  Country: None (occurrence: None)
  Receive Date: 20091208
  Receipt Date: 20090417
  Transmission Date: 20100525
  Serious: No
  Sender: FDA-Public Use
  Company Number: US-AMGEN-KDL339850

PATIENT
  Sex: Male
  Weight: 103.5 kg

DRUGS (3)
  1. ENBREL [Suspect]
     Indication: PSORIATIC ARTHROPATHY
     Route: 058
     Dates: start: 20090202
  2. ENBREL [Suspect]
     Indication: PSORIASIS
  3. METHOTREXATE [Concomitant]
     Dates: start: 20090121

REACTIONS (11)
  - CHILLS [None]
  - COUGH [None]
  - HAEMATURIA [None]
  - HEADACHE [None]
  - HYPERLIPIDAEMIA [None]
  - NASOPHARYNGITIS [None]
  - OBESITY [None]
  - PRODUCTIVE COUGH [None]
  - PYREXIA [None]
  - RHINORRHOEA [None]
  - SPINAL DEFORMITY [None]
